FAERS Safety Report 16781922 (Version 1)
Quarter: 2019Q3

REPORT INFORMATION
  Report Type: Report from Study
  Country: ZA (occurrence: ZA)
  Receive Date: 20190906
  Receipt Date: 20190906
  Transmission Date: 20191005
  Serious: Yes (Death, Hospitalization, Other)
  Sender: FDA-Public Use
  Company Number: ZA-ASTRAZENECA-2019SF18022

PATIENT
  Age: 22501 Day
  Sex: Male

DRUGS (1)
  1. TRUSTAN [Suspect]
     Active Substance: ESOMEPRAZOLE
     Indication: ULCER
     Dosage: 40.0MG UNKNOWN
     Route: 065

REACTIONS (3)
  - Cardiac failure [Unknown]
  - Lower respiratory tract infection [Unknown]
  - Death [Fatal]

NARRATIVE: CASE EVENT DATE: 20190830
